FAERS Safety Report 8537084-5 (Version None)
Quarter: 2012Q3

REPORT INFORMATION
  Report Type: 
  Country: None (occurrence: None)
  Receive Date: 20120725
  Receipt Date: 20120717
  Transmission Date: 20120928
  Serious: Yes (Hospitalization)
  Sender: FDA-Public Use
  Company Number: DE-TEVA-347725GER

PATIENT
  Sex: Female
  Weight: 73 kg

DRUGS (8)
  1. DOXORUBICIN HCL [Suspect]
     Route: 042
     Dates: start: 20120716, end: 20120716
  2. LEVOTHYROXINE SODIUM [Concomitant]
     Dosage: 75 MICROGRAM;
  3. DOXORUBICIN HCL [Suspect]
     Indication: BREAST CANCER
     Route: 042
     Dates: start: 20120319, end: 20120709
  4. PACLITAXEL [Suspect]
     Indication: BREAST CANCER
     Route: 042
     Dates: start: 20120319, end: 20120709
  5. HERCEPTIN [Suspect]
     Indication: BREAST CANCER
     Route: 042
     Dates: start: 20120319
  6. PACLITAXEL [Suspect]
     Route: 042
     Dates: start: 20120713, end: 20120713
  7. RAMIPRIL [Concomitant]
     Dosage: 10 MILLIGRAM;
  8. LAPATINIB [Suspect]
     Indication: BREAST CANCER
     Dosage: 750 MILLIGRAM;
     Route: 048
     Dates: start: 20120319

REACTIONS (1)
  - PLEURISY [None]
